FAERS Safety Report 7490590-7 (Version None)
Quarter: 2011Q2

REPORT INFORMATION
  Report Type: 
  Country: None (occurrence: None)
  Receive Date: 20110519
  Receipt Date: 20110516
  Transmission Date: 20111010
  Serious: No
  Sender: FDA-Public Use
  Company Number: US-PFIZER INC-2011078245

PATIENT
  Sex: Male
  Weight: 77 kg

DRUGS (2)
  1. ADVIL PM [Suspect]
     Indication: INSOMNIA
     Dosage: 400 MG, UNK
     Route: 048
     Dates: start: 20110408
  2. ZOLPIDEM [Concomitant]
     Indication: INSOMNIA
     Dosage: UNK

REACTIONS (1)
  - DRUG INEFFECTIVE [None]
